FAERS Safety Report 5056046-6 (Version None)
Quarter: 2006Q3

REPORT INFORMATION
  Report Type: 
  Country: None (occurrence: None)
  Receive Date: 20060717
  Receipt Date: 20060717
  Transmission Date: 20061208
  Serious: Yes (Other)
  Sender: FDA-Public Use
  Company Number: None

PATIENT
  Sex: Female
  Weight: 63.5036 kg

DRUGS (3)
  1. ESTRADIOL [Suspect]
     Indication: BREAST CANCER
     Dosage: 6 MG PO TID
     Route: 048
     Dates: start: 20060509, end: 20060630
  2. BI-FLEX [Concomitant]
  3. VITAMIN E [Concomitant]

REACTIONS (7)
  - ERYTHEMA [None]
  - FATIGUE [None]
  - JOINT SWELLING [None]
  - MUSCLE SPASMS [None]
  - OEDEMA PERIPHERAL [None]
  - PAIN IN EXTREMITY [None]
  - VENOUS THROMBOSIS LIMB [None]
